FAERS Safety Report 10501510 (Version 2)
Quarter: 2014Q4

REPORT INFORMATION
  Report Type: Spontaneous
  Country: JP (occurrence: JP)
  Receive Date: 20141007
  Receipt Date: 20141027
  Transmission Date: 20150528
  Serious: Yes (Death)
  Sender: FDA-Public Use
  Company Number: JP-SA-2014SA135824

PATIENT
  Age: 73 Year
  Sex: Male
  Weight: 50 kg

DRUGS (10)
  1. PLAVIX [Suspect]
     Active Substance: CLOPIDOGREL BISULFATE
     Indication: ACUTE CORONARY SYNDROME
     Route: 048
     Dates: start: 20140426, end: 20140426
  2. ASPIRIN. [Suspect]
     Active Substance: ASPIRIN
     Indication: ACUTE CORONARY SYNDROME
     Dosage: STRENGTH-100 MG
     Route: 065
     Dates: start: 20140427, end: 20140427
  3. SPIRONOLACTONE. [Concomitant]
     Active Substance: SPIRONOLACTONE
     Indication: CARDIAC FAILURE
     Route: 048
     Dates: start: 20120517, end: 20140527
  4. ASPIRIN. [Suspect]
     Active Substance: ASPIRIN
     Indication: ACUTE CORONARY SYNDROME
     Dosage: STRENGTH-100 MG
     Route: 065
     Dates: start: 20140426, end: 20140426
  5. SPIRONOLACTONE. [Concomitant]
     Active Substance: SPIRONOLACTONE
     Indication: PLEURAL EFFUSION
     Route: 048
     Dates: start: 20120517, end: 20140527
  6. PLAVIX [Suspect]
     Active Substance: CLOPIDOGREL BISULFATE
     Indication: ACUTE CORONARY SYNDROME
     Route: 048
     Dates: start: 20140427, end: 20140427
  7. DIART [Concomitant]
     Active Substance: AZOSEMIDE
     Indication: PLEURAL EFFUSION
     Route: 048
     Dates: start: 20120517, end: 20140427
  8. ELIQUIS [Suspect]
     Active Substance: APIXABAN
     Indication: ATRIAL FIBRILLATION
     Dosage: STRENGTH-5 MG
     Route: 048
     Dates: start: 20140426, end: 20140427
  9. DIART [Concomitant]
     Active Substance: AZOSEMIDE
     Indication: CARDIAC FAILURE
     Route: 048
     Dates: start: 20120517, end: 20140427
  10. SOLANAX [Concomitant]
     Active Substance: ALPRAZOLAM
     Indication: RESTLESSNESS
     Route: 048
     Dates: start: 20140427, end: 20140427

REACTIONS (2)
  - Cerebral haemorrhage [Fatal]
  - Pulmonary haemorrhage [Fatal]

NARRATIVE: CASE EVENT DATE: 20140428
